FAERS Safety Report 20694432 (Version 1)
Quarter: 2022Q2

REPORT INFORMATION
  Report Type: Spontaneous
  Country: US (occurrence: US)
  Receive Date: 20220411
  Receipt Date: 20220411
  Transmission Date: 20220720
  Serious: Yes (Other)
  Sender: FDA-Public Use
  Company Number: US-Vifor (International) Inc.-VIT-2022-02363

PATIENT
  Age: 26 Year
  Sex: Female
  Weight: 97 kg

DRUGS (2)
  1. MIRCERA [Suspect]
     Active Substance: METHOXY POLYETHYLENE GLYCOL-EPOETIN BETA
     Indication: Nephrogenic anaemia
     Dosage: AT 11:06 FIRST DOSE OF MIRCERA 50 MCG IVP ADMINISTERED? ON 30.MAR.2022, AT 11:08 SECOND DOSE OF MIR
     Route: 042
     Dates: start: 20220316, end: 20220316
  2. MIRCERA [Suspect]
     Active Substance: METHOXY POLYETHYLENE GLYCOL-EPOETIN BETA
     Dosage: AT 11:06 FIRST DOSE OF MIRCERA 50 MCG IVP ADMINISTERED?ON 30.MAR.2022, AT 11:08 SECOND DOSE OF MIRCE
     Route: 042
     Dates: start: 20220330, end: 20220330

REACTIONS (8)
  - Drug hypersensitivity [Recovered/Resolved]
  - Nausea [Recovered/Resolved]
  - Vomiting [Recovered/Resolved]
  - Dizziness [Recovered/Resolved]
  - Chest discomfort [Recovered/Resolved]
  - Dyspnoea [Recovered/Resolved]
  - Retching [Recovered/Resolved]
  - Lip discolouration [Recovered/Resolved]

NARRATIVE: CASE EVENT DATE: 20220316
